FAERS Safety Report 6801991-1 (Version None)
Quarter: 2010Q2

REPORT INFORMATION
  Report Type: 
  Country: None (occurrence: None)
  Receive Date: 20100629
  Receipt Date: 20060419
  Transmission Date: 20101027
  Serious: No
  Sender: FDA-Public Use
  Company Number: US-PFIZER INC-23100315

PATIENT
  Sex: Male

DRUGS (1)
  1. ARGATROBAN [Suspect]
     Route: 042
     Dates: start: 20060411, end: 20060416

REACTIONS (1)
  - BLOOD POTASSIUM INCREASED [None]
